FAERS Safety Report 9515474 (Version 2)
Quarter: 2013Q3

REPORT INFORMATION
  Report Type: Spontaneous
  Country: US (occurrence: US)
  Receive Date: 20130911
  Receipt Date: 20130924
  Transmission Date: 20140515
  Serious: Yes (Other)
  Sender: FDA-Public Use
  Company Number: US-AMGEN-USASP2013062426

PATIENT
  Age: 60 Year
  Sex: Female
  Weight: 81.18 kg

DRUGS (4)
  1. PROLIA [Suspect]
     Indication: OSTEOPOROSIS
     Dosage: 60 MG, Q6MO
     Route: 058
     Dates: start: 20130513
  2. SYNTHROID [Concomitant]
  3. MULTIVITAMIN                       /00097801/ [Concomitant]
  4. CALCIUM [Concomitant]

REACTIONS (3)
  - Tooth abscess [Recovering/Resolving]
  - Back pain [Recovered/Resolved]
  - Bone pain [Recovered/Resolved]
